FAERS Safety Report 14968912 (Version 2)
Quarter: 2018Q2

REPORT INFORMATION
  Report Type: Spontaneous
  Country: ES (occurrence: ES)
  Receive Date: 20180604
  Receipt Date: 20180605
  Transmission Date: 20180711
  Serious: Yes (Other)
  Sender: FDA-Public Use
  Company Number: ES-PFIZER INC-2018218465

PATIENT
  Age: 83 Year
  Sex: Male

DRUGS (7)
  1. ENZALUTAMIDE [Suspect]
     Active Substance: ENZALUTAMIDE
     Dosage: 160 MG, 1X/DAY (EVERY DAY)
     Dates: start: 201606, end: 201610
  2. LEUPRORELIN [Suspect]
     Active Substance: LEUPROLIDE ACETATE
     Dosage: UNK
  3. BICALUTAMIDE. [Suspect]
     Active Substance: BICALUTAMIDE
     Dosage: UNK
  4. CYCLOPHOSPHAMIDE. [Suspect]
     Active Substance: CYCLOPHOSPHAMIDE
     Dosage: 100 MG, 1X/DAY (EVERY DAY)
     Dates: start: 201705, end: 201801
  5. VALSARTAN. [Suspect]
     Active Substance: VALSARTAN
     Dosage: UNK
  6. DOCETAXEL. [Suspect]
     Active Substance: DOCETAXEL
     Dosage: 75 MG/M2, 7 CYCLES
     Dates: start: 201611, end: 201703
  7. METFORMIN [Suspect]
     Active Substance: METFORMIN HYDROCHLORIDE
     Dosage: UNK

REACTIONS (3)
  - Atrial fibrillation [Recovered/Resolved]
  - Neoplasm progression [Unknown]
  - Anaemia [Unknown]

NARRATIVE: CASE EVENT DATE: 2010
